FAERS Safety Report 6886905-0 (Version None)
Quarter: 2010Q3

REPORT INFORMATION
  Report Type: 
  Country: None (occurrence: None)
  Receive Date: 20100730
  Receipt Date: 20100716
  Transmission Date: 20110219
  Serious: Yes (Hospitalization, Other)
  Sender: FDA-Public Use
  Company Number: BR-BAYER-201016948LA

PATIENT
  Age: 27 Year
  Sex: Male
  Weight: 49 kg

DRUGS (8)
  1. SORAFENIB [Suspect]
     Indication: HEPATIC NEOPLASM MALIGNANT
     Dosage: TOTAL DAILY DOSE: 800 MG
     Route: 048
     Dates: start: 20100316, end: 20100429
  2. SORAFENIB [Suspect]
     Dosage: TOTAL DAILY DOSE: 400 MG
     Route: 048
     Dates: start: 20100430, end: 20100716
  3. PLACEBO [Suspect]
     Indication: HEPATIC NEOPLASM MALIGNANT
     Dosage: TOTAL DAILY DOSE: 150 MG
     Route: 048
     Dates: start: 20100316, end: 20100416
  4. PLACEBO [Suspect]
     Dosage: TOTAL DAILY DOSE: 50 MG
     Route: 048
     Dates: start: 20100507, end: 20100716
  5. PLACEBO [Suspect]
     Dosage: TOTAL DAILY DOSE: 100 MG
     Route: 048
     Dates: start: 20100417, end: 20100506
  6. TRAMAL [Concomitant]
     Indication: HIP FRACTURE
     Route: 042
     Dates: start: 20100603, end: 20100603
  7. LISADOR [Concomitant]
     Indication: HIP FRACTURE
     Route: 048
     Dates: start: 20100603, end: 20100604
  8. TYLEX [Concomitant]
     Indication: HIP FRACTURE
     Dosage: 7,5 MG+500MG (CODEIN+PARACETAMOL)
     Route: 048
     Dates: start: 20100604

REACTIONS (1)
  - CONVULSION [None]
